FAERS Safety Report 11610177 (Version 1)
Quarter: 2015Q3

REPORT INFORMATION
  Report Type: Spontaneous
  Country: US (occurrence: US)
  Receive Date: 20150916
  Receipt Date: 20150916
  Transmission Date: 20151125
  Serious: No
  Sender: FDA-Public Use
  Company Number: US-ELI_LILLY_AND_COMPANY-US201311005627

PATIENT
  Sex: Male

DRUGS (1)
  1. HUMALOG [Suspect]
     Active Substance: INSULIN LISPRO
     Indication: DIABETES MELLITUS
     Dosage: 6 U, UNK
     Route: 065

REACTIONS (8)
  - Hearing impaired [Unknown]
  - Frustration [Unknown]
  - Incorrect dose administered [Unknown]
  - Medication error [Unknown]
  - Disturbance in attention [Unknown]
  - Blood glucose increased [Unknown]
  - Gait disturbance [Unknown]
  - Dizziness [Unknown]
